FAERS Safety Report 14604518 (Version 1)
Quarter: 2018Q1

REPORT INFORMATION
  Report Type: Spontaneous
  Country: GB (occurrence: GB)
  Receive Date: 20180306
  Receipt Date: 20180306
  Transmission Date: 20180509
  Serious: Yes (Other)
  Sender: FDA-Public Use
  Company Number: GB-TEVA-2018-GB-864789

PATIENT
  Age: 32 Year
  Sex: Female
  Weight: 94 kg

DRUGS (11)
  1. MST CONTINUS [Concomitant]
     Active Substance: MORPHINE SULFATE
     Dosage: 2 DOSAGE FORMS DAILY;
     Dates: start: 20171114, end: 20171114
  2. NAPROXEN. [Concomitant]
     Active Substance: NAPROXEN
     Dosage: 2 DOSAGE FORMS DAILY;
     Dates: start: 20170816
  3. ZOMORPH [Concomitant]
     Active Substance: MORPHINE SULFATE
     Dosage: 2 DOSAGE FORMS DAILY;
     Dates: start: 20171114, end: 20171214
  4. HYDROXOCOBALAMIN [Concomitant]
     Active Substance: HYDROXOCOBALAMIN
     Dosage: SIX LOADING DOSES OVER 2 WEEKS. THEN RECHECK BL...
     Dates: start: 20171027
  5. CETIRIZINE [Concomitant]
     Active Substance: CETIRIZINE HYDROCHLORIDE
     Dosage: 1 DOSAGE FORMS DAILY; FOR REACTION TO PATCH
     Dates: start: 20171108, end: 20171208
  6. PREGABALIN. [Concomitant]
     Active Substance: PREGABALIN
     Dosage: 3 DOSAGE FORMS DAILY;
     Dates: start: 20170821
  7. CERELLE [Concomitant]
     Active Substance: DESOGESTREL
     Dosage: 1 DOSAGE FORMS DAILY;
     Dates: start: 20140122
  8. BUPRENORPHINE. [Suspect]
     Active Substance: BUPRENORPHINE
     Dates: start: 20170915
  9. BUTEC [Concomitant]
     Active Substance: BUPRENORPHINE
     Dosage: AS DIRECTED
     Dates: start: 20171031, end: 20171114
  10. OTOMIZE [Concomitant]
     Active Substance: DEXAMETHASONE\NEOMYCIN SULFATE
     Dosage: 3 DOSAGE FORMS DAILY;
     Dates: start: 20171213, end: 20171220
  11. ORAMORPH [Concomitant]
     Active Substance: MORPHINE SULFATE
     Dosage: MAX EVERY 2 HRS
     Dates: start: 20171114, end: 20171212

REACTIONS (3)
  - Dermatitis [Not Recovered/Not Resolved]
  - Pruritus [Not Recovered/Not Resolved]
  - Dermatitis allergic [Recovered/Resolved]

NARRATIVE: CASE EVENT DATE: 20180107
